FAERS Safety Report 5397972-8 (Version None)
Quarter: 2007Q3

REPORT INFORMATION
  Report Type: 
  Country: None (occurrence: None)
  Receive Date: 20070726
  Receipt Date: 20070716
  Transmission Date: 20080115
  Serious: Yes (Hospitalization)
  Sender: FDA-Public Use
  Company Number: FR-PURDUE-GBR_2007_0003127

PATIENT
  Age: 84 Year
  Sex: Male

DRUGS (3)
  1. SEVREDOL TABLETS 10 MG [Suspect]
     Indication: PAIN
     Dosage: 10 MG, UNK
     Route: 048
     Dates: end: 20070510
  2. SKENAN [Suspect]
     Indication: PAIN
     Dosage: UNK UNK, BID
     Route: 048
     Dates: end: 20070510
  3. NEURONTIN [Suspect]
     Indication: PAIN
     Dosage: 400 MG, TID
     Route: 048
     Dates: end: 20070510

REACTIONS (4)
  - CONFUSIONAL STATE [None]
  - FATIGUE [None]
  - HYPOTENSION [None]
  - MIOSIS [None]
